FAERS Safety Report 15695666 (Version 1)
Quarter: 2018Q4

REPORT INFORMATION
  Report Type: Spontaneous
  Country: US (occurrence: US)
  Receive Date: 20181206
  Receipt Date: 20181206
  Transmission Date: 20190205
  Serious: Yes (Hospitalization)
  Sender: FDA-Public Use
  Company Number: US-FRESENIUS KABI-FK201812299

PATIENT
  Age: 64 Year
  Sex: Female

DRUGS (13)
  1. VINCRISTINE SULFATE. [Suspect]
     Active Substance: VINCRISTINE SULFATE
     Indication: PRODUCT USED FOR UNKNOWN INDICATION
     Dosage: (REGIMEN A: IV DAY 1 AND 8 (CYCLES 1, 3, 5, 7))
     Route: 042
  2. PEGFILGRASTIM [Suspect]
     Active Substance: PEGFILGRASTIM
     Dosage: (CYCLIC, REGIMEN B (CYCLES 2, 4, 6, 8))
     Route: 058
  3. CYCLOPHOSPHAMIDE. [Suspect]
     Active Substance: CYCLOPHOSPHAMIDE
     Indication: PRODUCT USED FOR UNKNOWN INDICATION
     Dosage: (REGIMEN A: OVER 3 HOURS TWICE A DAY ON DAYS 1-3 (CYCLES 1, 3, 5, 7))
     Route: 042
  4. RITUXIMAB. [Suspect]
     Active Substance: RITUXIMAB
     Indication: PRODUCT USED FOR UNKNOWN INDICATION
     Dosage: (REGIMEN A: ON DAY 2 AND DAY 8 (CYCLES 1 AND 3 ONLY))
     Route: 042
  5. INOTUZUMAB OZOGAMICIN [Suspect]
     Active Substance: INOTUZUMAB OZOGAMICIN
     Indication: ACUTE LYMPHOCYTIC LEUKAEMIA
     Dosage: (REGIMEN A: IV OVER 1 HOUR ON DAY 3 (CYCLES 1, 3, 5, 7)
     Route: 042
     Dates: start: 20180718
  6. INOTUZUMAB OZOGAMICIN [Suspect]
     Active Substance: INOTUZUMAB OZOGAMICIN
     Indication: ACUTE LYMPHOCYTIC LEUKAEMIA
     Dosage: REGIMEN B: IV ON DAY 2 OR 3 (CYCLES 2 AND 4)
     Route: 042
  7. RITUXIMAB. [Suspect]
     Active Substance: RITUXIMAB
     Dosage: (REGIMEN B:ON DAY 2 AND 8 OF CYCLES 2 AND 4)
     Route: 042
  8. CYTARABINE. [Suspect]
     Active Substance: CYTARABINE
     Indication: PRODUCT USED FOR UNKNOWN INDICATION
     Dosage: REGIMENT B: OVER 3 HOURS TWICE A DAY X 4 DOSES ON DAYS 2 AND 3 (CYCLES 2, 4, 6, 8))
     Route: 042
  9. METHOTREXATE SODIUM. [Suspect]
     Active Substance: METHOTREXATE SODIUM
     Indication: PRODUCT USED FOR UNKNOWN INDICATION
     Dosage: REGIMEN B: 50 MG/M2 IV OVER 2HRS ON DAY 1 (CYCLES 2, 4, 6, 8)
     Route: 042
  10. METHOTREXATE SODIUM. [Suspect]
     Active Substance: METHOTREXATE SODIUM
     Dosage: (INFUSION OVER 22 HOURS ON DAY1 (CYCLES 2, 4, 6, 8))
     Route: 042
  11. PEGFILGRASTIM [Suspect]
     Active Substance: PEGFILGRASTIM
     Indication: PRODUCT USED FOR UNKNOWN INDICATION
     Dosage: (CYCLIC; REGIMEN A (CYCLES 1, 3, 5, 7))
     Route: 058
  12. MESNA (MANUFACTURER UNKNOWN) [Suspect]
     Active Substance: MESNA
     Indication: PRODUCT USED FOR UNKNOWN INDICATION
     Dosage: (REGIMEN A: DAILY OVER 24 HOURS FOR 3 DAYS ON DAYS 1-3 (CYCLES 1, 3, 5, 7))
     Route: 042
  13. DEXAMETHASONE. [Suspect]
     Active Substance: DEXAMETHASONE
     Indication: PRODUCT USED FOR UNKNOWN INDICATION
     Dosage: (REGIMEN A: DAILY FOR 4 DAYS ON DAYS 1-4 AND DAYS 11-14 (CYCLES 1, 3, 5, 7))
     Route: 042

REACTIONS (1)
  - Ileus [Recovered/Resolved]

NARRATIVE: CASE EVENT DATE: 20181003
